FAERS Safety Report 8875909 (Version 1)
Quarter: 2012Q4

REPORT INFORMATION
  Report Type: 
  Country: US (occurrence: US)
  Receive Date: 20121023
  Receipt Date: 20121023
  Transmission Date: 20130627
  Serious: Yes (Death, Hospitalization)
  Sender: FDA-Public Use
  Company Number: US-GLAXOSMITHKLINE-A0997534A

PATIENT
  Age: 78 Year
  Sex: Female

DRUGS (3)
  1. VENTOLIN [Suspect]
     Indication: PULMONARY FIBROSIS
     Dosage: 2PUFF Twice per day
     Route: 055
  2. PREDNISONE [Concomitant]
  3. XOPENEX [Concomitant]
     Route: 055

REACTIONS (1)
  - Cerebrovascular accident [Fatal]
